FAERS Safety Report 6856101-1 (Version None)
Quarter: 2010Q3

REPORT INFORMATION
  Report Type: 
  Country: None (occurrence: None)
  Receive Date: 20100715
  Receipt Date: 20100715
  Transmission Date: 20110219
  Serious: Yes (Life-Threatening, Disabling, Other)
  Sender: FDA-Public Use
  Company Number: None

PATIENT
  Age: 72 Year
  Sex: Female
  Weight: 55.3388 kg

DRUGS (1)
  1. PRINIVIL [Suspect]

REACTIONS (3)
  - HEPATITIS [None]
  - JAUNDICE [None]
  - LIVER INJURY [None]
